FAERS Safety Report 14083589 (Version 3)
Quarter: 2017Q4

REPORT INFORMATION
  Report Type: Report from Study
  Country: None (occurrence: BR)
  Receive Date: 20171013
  Receipt Date: 20171027
  Transmission Date: 20180321
  Serious: Yes (Hospitalization, Disabling, Other)
  Sender: FDA-Public Use
  Company Number: BR-ABBVIE-15K-020-1462773-00

PATIENT
  Age: 54 Year
  Sex: Female
  Weight: 80 kg

DRUGS (2)
  1. ARAVA [Concomitant]
     Active Substance: LEFLUNOMIDE
     Indication: RHEUMATOID ARTHRITIS
     Route: 048
  2. HUMIRA [Suspect]
     Active Substance: ADALIMUMAB
     Indication: RHEUMATOID ARTHRITIS
     Route: 058
     Dates: start: 20140530, end: 201705

REACTIONS (9)
  - Musculoskeletal stiffness [Recovered/Resolved]
  - Pain in extremity [Unknown]
  - Sciatic nerve neuropathy [Recovered/Resolved]
  - Pain [Not Recovered/Not Resolved]
  - Joint swelling [Recovering/Resolving]
  - Hypoaesthesia [Unknown]
  - Rheumatoid arthritis [Unknown]
  - Pain in extremity [Not Recovered/Not Resolved]
  - Arthralgia [Recovering/Resolving]

NARRATIVE: CASE EVENT DATE: 201507
